FAERS Safety Report 9484230 (Version 1)
Quarter: 2013Q3

REPORT INFORMATION
  Report Type: Spontaneous
  Country: US (occurrence: US)
  Receive Date: 20130828
  Receipt Date: 20130828
  Transmission Date: 20140515
  Serious: Yes (Hospitalization)
  Sender: FDA-Public Use
  Company Number: US-AMGEN-KDL398566

PATIENT
  Age: 64 Year
  Sex: Female
  Weight: 85.8 kg

DRUGS (11)
  1. ENBREL [Suspect]
     Indication: PRODUCT USED FOR UNKNOWN INDICATION
     Dosage: 50 MG, QWK
     Route: 058
     Dates: end: 20100223
  2. ALENDRONATE SODIUM [Concomitant]
     Dosage: 70 MG, UNK
  3. CETIRIZINE HYDROCHLORIDE [Concomitant]
     Dosage: 10 MG, UNK
  4. ATORVASTATIN CALCIUM [Concomitant]
     Dosage: 10 MG, UNK
  5. METFORMIN [Concomitant]
     Dosage: 500 MG, UNK
  6. LISINOPRIL [Concomitant]
     Dosage: 2.5 MG, UNK
  7. HYDROXYCHLOROQUINE [Concomitant]
     Dosage: 200 MG, UNK
  8. LANSOPRAZOLE [Concomitant]
     Dosage: 15 MG, UNK
  9. TIOTROPIUM BROMIDE [Concomitant]
     Dosage: UNK UNK, UNK
  10. PIOGLITAZONE HCL [Concomitant]
     Dosage: 15 MG, UNK
  11. CALCIUM WITH VITAMIN D [Concomitant]
     Dosage: 600 MG, UNK

REACTIONS (3)
  - Dyspnoea [Unknown]
  - Pulmonary oedema [Unknown]
  - Local swelling [Unknown]
